FAERS Safety Report 8579215-7 (Version None)
Quarter: 2012Q3

REPORT INFORMATION
  Report Type: 
  Country: None (occurrence: None)
  Receive Date: 20120808
  Receipt Date: 20120724
  Transmission Date: 20120928
  Serious: Yes (Other)
  Sender: FDA-Public Use
  Company Number: JP-ROCHE-1094789

PATIENT
  Sex: Male
  Weight: 76 kg

DRUGS (3)
  1. VALCYTE [Suspect]
     Indication: CYTOMEGALOVIRUS INFECTION
     Route: 048
     Dates: start: 20120222, end: 20120308
  2. TRUVADA [Concomitant]
     Route: 048
     Dates: start: 20120223, end: 20120331
  3. ISENTRESS [Concomitant]
     Route: 048
     Dates: start: 20120223, end: 20120331

REACTIONS (1)
  - ACUTE HIV INFECTION [None]
